FAERS Safety Report 11074559 (Version 1)
Quarter: 2015Q2

REPORT INFORMATION
  Report Type: Spontaneous
  Country: GB (occurrence: None)
  Receive Date: 20150427
  Receipt Date: 20150427
  Transmission Date: 20150821
  Serious: Yes (Hospitalization)
  Sender: FDA-Public Use
  Company Number: IPC201504-000215

PATIENT
  Age: 62 Year
  Sex: Female

DRUGS (1)
  1. WARFARIN (WARFARIN) (WARFAIN) [Suspect]
     Active Substance: WARFARIN
     Indication: ATRIAL FIBRILLATION
     Dosage: - STOPPED

REACTIONS (4)
  - Small intestinal obstruction [None]
  - International normalised ratio increased [None]
  - Small intestinal haemorrhage [None]
  - Coagulation time prolonged [None]
